FAERS Safety Report 6170616-3 (Version None)
Quarter: 2009Q2

REPORT INFORMATION
  Report Type: 
  Country: None (occurrence: None)
  Receive Date: 20090428
  Receipt Date: 20090417
  Transmission Date: 20091009
  Serious: Yes (Other)
  Sender: FDA-Public Use
  Company Number: US-WYE-H09028609

PATIENT
  Sex: Female

DRUGS (2)
  1. EFFEXOR [Suspect]
     Dosage: UNKNOWN
  2. EFFEXOR [Suspect]
     Dosage: ^STARTING THE WITHDRAWAL PROGRAM^

REACTIONS (2)
  - DRUG DEPENDENCE [None]
  - DRUG WITHDRAWAL SYNDROME [None]
